FAERS Safety Report 7641984-8 (Version None)
Quarter: 2011Q3

REPORT INFORMATION
  Report Type: 
  Country: None (occurrence: None)
  Receive Date: 20110728
  Receipt Date: 20110725
  Transmission Date: 20111222
  Serious: Yes (Other)
  Sender: FDA-Public Use
  Company Number: AZ-PFIZER INC-2011169047

PATIENT
  Sex: Female

DRUGS (1)
  1. DOSTINEX [Suspect]
     Indication: BLOOD PROLACTIN INCREASED
     Dosage: 0.25 MG, 2X/WEEK
     Route: 048
     Dates: start: 20070101, end: 20110601

REACTIONS (2)
  - HYPOPROLACTINAEMIA [None]
  - BLOOD PROLACTIN INCREASED [None]
